FAERS Safety Report 5051959-3 (Version None)
Quarter: 2006Q3

REPORT INFORMATION
  Report Type: 
  Country: None (occurrence: None)
  Receive Date: 20060710
  Receipt Date: 20060630
  Transmission Date: 20061208
  Serious: Yes (Other)
  Sender: FDA-Public Use
  Company Number: 2005062678

PATIENT
  Age: 66 Year
  Sex: Male

DRUGS (3)
  1. NORVASC [Suspect]
  2. UNSPECIFIED ACE INHIBITOR (ACE INHIBITOR) [Concomitant]
  3. UNSPECIFIED BETA-BLOCKER (BETA BLOCKING AGENTS) [Concomitant]

REACTIONS (6)
  - ANAEMIA [None]
  - ANKYLOSING SPONDYLITIS [None]
  - BURSITIS [None]
  - CARPAL TUNNEL SYNDROME [None]
  - PSORIASIS [None]
  - RED BLOOD CELL SEDIMENTATION RATE INCREASED [None]
